FAERS Safety Report 17148729 (Version 2)
Quarter: 2020Q1

REPORT INFORMATION
  Report Type: Spontaneous
  Country: BR (occurrence: BR)
  Receive Date: 20191213
  Receipt Date: 20200305
  Transmission Date: 20200409
  Serious: Yes (Hospitalization, Disabling, Other)
  Sender: FDA-Public Use
  Company Number: BR-BIOMARINP-000317

PATIENT
  Age: 11 Year
  Sex: Female
  Weight: 48.9 kg

DRUGS (2)
  1. NAGLAZYME [Suspect]
     Active Substance: GALSULFASE
     Indication: MUCOPOLYSACCHARIDOSIS VI
     Dosage: 20MG,QW
     Route: 041
     Dates: start: 20090205
  2. PHENYTOIN. [Concomitant]
     Active Substance: PHENYTOIN
     Indication: PRODUCT USED FOR UNKNOWN INDICATION
     Dosage: 100 MILLIGRAM, BID

REACTIONS (7)
  - Mobility decreased [Recovering/Resolving]
  - Muscular weakness [Recovering/Resolving]
  - Hypoaesthesia [Unknown]
  - Hypokinesia [Unknown]
  - Cervical spinal stenosis [Recovering/Resolving]
  - Intracranial pressure increased [Recovering/Resolving]
  - Hydrocephalus [Unknown]

NARRATIVE: CASE EVENT DATE: 20091228
